FAERS Safety Report 19755225 (Version 4)
Quarter: 2021Q3

REPORT INFORMATION
  Report Type: Report from Study
  Country: US (occurrence: US)
  Receive Date: 20210827
  Receipt Date: 20210916
  Transmission Date: 20211014
  Serious: Yes (Other)
  Sender: FDA-Public Use
  Company Number: US-BEH-2021135363

PATIENT
  Age: 53 Year
  Sex: Female
  Weight: 96.4 kg

DRUGS (4)
  1. HAEGARDA [Suspect]
     Active Substance: HUMAN C1-ESTERASE INHIBITOR
     Indication: HEREDITARY ANGIOEDEMA
     Dosage: 3000
     Route: 065
  2. HAEGARDA [Suspect]
     Active Substance: HUMAN C1-ESTERASE INHIBITOR
     Dosage: 6000 INTERNATIONAL UNIT, BIW
     Route: 058
     Dates: start: 20210908
  3. HAEGARDA [Suspect]
     Active Substance: HUMAN C1-ESTERASE INHIBITOR
     Dosage: 6000 INTERNATIONAL UNIT, BIW
     Route: 058
     Dates: start: 20210825
  4. HAEGARDA [Suspect]
     Active Substance: HUMAN C1-ESTERASE INHIBITOR
     Indication: PROPHYLAXIS
     Dosage: 6000 INTERNATIONAL UNIT, BIW
     Route: 058
     Dates: start: 20200702

REACTIONS (12)
  - Hereditary angioedema [Not Recovered/Not Resolved]
  - Insurance issue [Unknown]
  - Illness [Unknown]
  - Hereditary angioedema [Recovering/Resolving]
  - Contusion [Recovering/Resolving]
  - Therapy interrupted [Unknown]
  - Insurance issue [Recovering/Resolving]
  - Therapy change [Recovering/Resolving]
  - Asthenia [Unknown]
  - Loss of consciousness [Unknown]
  - Contusion [Unknown]
  - Cough [Unknown]

NARRATIVE: CASE EVENT DATE: 20210825
